FAERS Safety Report 5152852-8 (Version None)
Quarter: 2006Q4

REPORT INFORMATION
  Report Type: 
  Country: None (occurrence: None)
  Receive Date: 20060918
  Receipt Date: 20060217
  Transmission Date: 20070319
  Serious: Yes (Other)
  Sender: FDA-Public Use
  Company Number: PHEH2006US02094

PATIENT
  Age: 46 Year
  Sex: Female
  Weight: 89.3 kg

DRUGS (2)
  1. FEMARA [Suspect]
     Indication: BREAST CANCER METASTATIC
     Dosage: 2.5 MG, QD, ORAL
     Route: 048
     Dates: start: 20040801
  2. VITAMIN D [Concomitant]

REACTIONS (3)
  - BIOPSY LYMPH GLAND [None]
  - MALIGNANT BREAST LUMP REMOVAL [None]
  - MALIGNANT NEOPLASM PROGRESSION [None]
